FAERS Safety Report 14419637 (Version 1)
Quarter: 2018Q1

REPORT INFORMATION
  Report Type: Spontaneous
  Country: US (occurrence: US)
  Receive Date: 20180120
  Receipt Date: 20180120
  Transmission Date: 20180509
  Serious: No
  Sender: FDA-Public Use
  Company Number: None

PATIENT
  Age: 65 Year
  Sex: Female

DRUGS (1)
  1. COPAXONE [Suspect]
     Active Substance: GLATIRAMER ACETATE

REACTIONS (5)
  - Blood pressure increased [None]
  - Chills [None]
  - Heart rate increased [None]
  - Feeling hot [None]
  - Chest discomfort [None]

NARRATIVE: CASE EVENT DATE: 20180119
